FAERS Safety Report 5226391-X (Version None)
Quarter: 2007Q1

REPORT INFORMATION
  Report Type: 
  Country: None (occurrence: None)
  Receive Date: 20070201
  Receipt Date: 20070119
  Transmission Date: 20070707
  Serious: Yes (Hospitalization)
  Sender: FDA-Public Use
  Company Number: US-ELI_LILLY_AND_COMPANY-US200605006704

PATIENT
  Age: 69 Year
  Sex: Female

DRUGS (6)
  1. FORTEO [Suspect]
     Indication: OSTEOPOROSIS
     Dosage: 20 UG, DAILY (1/D)
     Dates: start: 20060501, end: 20060501
  2. FORTEO [Suspect]
     Dosage: 20 UG, DAILY (1/D)
  3. HYDROCHLOROTHIAZIDE [Concomitant]
     Dosage: 12.5 MG, DAILY (1/D)
  4. ATENOLOL [Concomitant]
     Dosage: 12.5 MG, DAILY (1/D)
     Route: 048
  5. RESTORIL [Concomitant]
     Dosage: 15 MG, EACH EVENING
     Route: 048
  6. TYLENOL                                 /USA/ [Concomitant]
     Dosage: UNK, AS NEEDED

REACTIONS (2)
  - ATRIAL FIBRILLATION [None]
  - FEELING ABNORMAL [None]
